FAERS Safety Report 8824782 (Version 1)
Quarter: 2012Q4

REPORT INFORMATION
  Report Type: 
  Country: NL (occurrence: NL)
  Receive Date: 20121004
  Receipt Date: 20121004
  Transmission Date: 20130627
  Serious: Yes (Hospitalization)
  Sender: FDA-Public Use
  Company Number: PHHY2012NL086590

PATIENT
  Age: 73 Year
  Sex: Female

DRUGS (1)
  1. DICLOFENAC [Suspect]
     Indication: OSTEOARTHRITIS
     Dosage: 75 mg, BID
     Dates: start: 20120613, end: 20120620

REACTIONS (1)
  - Transient ischaemic attack [Recovered/Resolved]
